FAERS Safety Report 12780174 (Version 1)
Quarter: 2016Q3

REPORT INFORMATION
  Report Type: Spontaneous
  Country: JP (occurrence: JP)
  Receive Date: 20160926
  Receipt Date: 20160926
  Transmission Date: 20161109
  Serious: Yes (Death, Other)
  Sender: FDA-Public Use
  Company Number: JP-SHIONOGI, INC-2016000920

PATIENT
  Age: 80 Year
  Sex: Male
  Weight: 42 kg

DRUGS (2)
  1. FINIBAX [Suspect]
     Active Substance: DORIPENEM MONOHYDRATE
     Indication: PNEUMONIA
     Dosage: 1.5 G, QD
     Route: 065
  2. HEPARIN CALCIUM [Suspect]
     Active Substance: HEPARIN CALCIUM
     Dosage: 12 KIU, QD
     Route: 065

REACTIONS (2)
  - Pneumothorax [Fatal]
  - Heparin-induced thrombocytopenia [Recovering/Resolving]
